FAERS Safety Report 25951861 (Version 1)
Quarter: 2025Q4

REPORT INFORMATION
  Report Type: Spontaneous
  Country: US (occurrence: US)
  Receive Date: 20251023
  Receipt Date: 20251023
  Transmission Date: 20260118
  Serious: No
  Sender: GLAND PHARMA LTD
  Company Number: US-GLANDPHARMA-US-2025GLNSPO01895

PATIENT
  Age: 34 Year
  Sex: Female

DRUGS (6)
  1. ALLOPURINOL [Suspect]
     Active Substance: ALLOPURINOL
     Indication: Arthralgia
     Route: 065
  2. ALLOPURINOL [Suspect]
     Active Substance: ALLOPURINOL
     Indication: Pain in extremity
  3. COLCHICINE [Concomitant]
     Active Substance: COLCHICINE
     Route: 065
  4. COLCHICINE [Concomitant]
     Active Substance: COLCHICINE
  5. INDOMETHACIN [Concomitant]
     Active Substance: INDOMETHACIN
     Route: 065
  6. INDOMETHACIN [Concomitant]
     Active Substance: INDOMETHACIN

REACTIONS (1)
  - Drug ineffective for unapproved indication [Unknown]
